FAERS Safety Report 18599025 (Version 1)
Quarter: 2020Q4

REPORT INFORMATION
  Report Type: Spontaneous
  Country: GB (occurrence: GB)
  Receive Date: 20201210
  Receipt Date: 20201210
  Transmission Date: 20210114
  Serious: Yes (Other)
  Sender: FDA-Public Use
  Company Number: GB-TEVA-2020-GB-1855869

PATIENT
  Age: 81 Year
  Sex: Female
  Weight: 69 kg

DRUGS (8)
  1. DOCUSATE [Concomitant]
     Active Substance: DOCUSATE
     Dosage: 100 MG
     Dates: start: 20201012
  2. ISOSORBIDE MONONITRATE. [Concomitant]
     Active Substance: ISOSORBIDE MONONITRATE
     Dosage: MORNING AND AFTERNOON.40 MG
     Dates: start: 20200901
  3. ATORVASTATIN [Concomitant]
     Active Substance: ATORVASTATIN
     Indication: BLOOD CHOLESTEROL INCREASED
     Dosage: 80 MILLIGRAM DAILY; IN THE EVENING.
     Dates: start: 20200901
  4. SOLIFENACIN [Suspect]
     Active Substance: SOLIFENACIN
     Dosage: 5 MG
     Dates: start: 20201012, end: 20201102
  5. OMEPRAZOLE. [Concomitant]
     Active Substance: OMEPRAZOLE
     Dosage: 20 MG TO PROTECT THE STOMACH.
     Dates: start: 20200929
  6. ACETYLSALICYLIC ACID [Concomitant]
     Active Substance: ASPIRIN
     Dosage: 75 MG
     Dates: start: 20200901
  7. SERTRALINE [Concomitant]
     Active Substance: SERTRALINE HYDROCHLORIDE
     Dosage: 50 MG
     Dates: start: 20200901
  8. CO-AMILOFRUSE [Concomitant]
     Active Substance: AMILORIDE\FUROSEMIDE
     Dosage: TAKE 1-2 IN THE MORNING. 5MG/40MG.
     Dates: start: 20200901

REACTIONS (2)
  - Memory impairment [Recovered/Resolved]
  - Confusional state [Recovered/Resolved]

NARRATIVE: CASE EVENT DATE: 20201012
